FAERS Safety Report 9461771 (Version 3)
Quarter: 2014Q1

REPORT INFORMATION
  Report Type: Spontaneous
  Country: GB (occurrence: GB)
  Receive Date: 20130816
  Receipt Date: 20140131
  Transmission Date: 20141002
  Serious: Yes (Other)
  Sender: FDA-Public Use
  Company Number: GB-JNJFOC-20130804824

PATIENT
  Sex: Male

DRUGS (4)
  1. STELARA [Suspect]
     Indication: PSORIASIS
     Route: 058
  2. CLOPIDOGREL [Concomitant]
     Route: 065
     Dates: end: 20130807
  3. CO-CODAMOL [Concomitant]
     Dosage: 30/ 500
     Route: 048
     Dates: end: 20130807
  4. GLICLAZIDE [Concomitant]
     Route: 065
     Dates: end: 20130807

REACTIONS (4)
  - Cardiac disorder [Unknown]
  - Nephrolithiasis [Unknown]
  - Arthritis [Unknown]
  - Psoriasis [Recovered/Resolved]
